FAERS Safety Report 25722218 (Version 3)
Quarter: 2025Q3

REPORT INFORMATION
  Report Type: Spontaneous
  Country: US (occurrence: US)
  Receive Date: 20250825
  Receipt Date: 20250904
  Transmission Date: 20251020
  Serious: No
  Sender: BAYER HEALTHCARE PHARMACEUTICALS INC.
  Company Number: US-BAYER-2025A111589

PATIENT
  Age: 44 Year
  Sex: Female

DRUGS (2)
  1. ESTRADIOL [Suspect]
     Active Substance: ESTRADIOL
     Route: 062
     Dates: start: 202505
  2. PROGESTERONE [Concomitant]
     Active Substance: PROGESTERONE
     Route: 048

REACTIONS (5)
  - Product adhesion issue [None]
  - Drug ineffective [None]
  - Night sweats [None]
  - Hot flush [None]
  - Arthralgia [None]

NARRATIVE: CASE EVENT DATE: 20250101
